FAERS Safety Report 20231659 (Version 1)
Quarter: 2021Q4

REPORT INFORMATION
  Report Type: Spontaneous
  Country: US (occurrence: None)
  Receive Date: 20211223
  Receipt Date: 20211223
  Transmission Date: 20220303
  Serious: Yes (Other)
  Sender: FDA-Public Use
  Company Number: None

PATIENT
  Age: 7 Year
  Sex: Female
  Weight: 24.75 kg

DRUGS (2)
  1. POLYETHYLENE GLYCOL [Suspect]
     Active Substance: POLYETHYLENE GLYCOL
     Indication: Constipation
     Dosage: FREQUENCY : DAILY;?
     Route: 048
     Dates: start: 20171201, end: 20211221
  2. Moderna Kidcove vaccine study [Concomitant]
     Dates: start: 20210816, end: 20210913

REACTIONS (11)
  - Flushing [None]
  - Erythema [None]
  - Dyspnoea [None]
  - Chest pain [None]
  - Flushing [None]
  - Heart rate increased [None]
  - Pruritus [None]
  - Feeling cold [None]
  - Body temperature decreased [None]
  - Chills [None]
  - Conjunctival hyperaemia [None]

NARRATIVE: CASE EVENT DATE: 20211221
